FAERS Safety Report 4320436-7 (Version None)
Quarter: 2004Q1

REPORT INFORMATION
  Report Type: 
  Country: None (occurrence: None)
  Receive Date: 20040316
  Receipt Date: 20031110
  Transmission Date: 20041129
  Serious: Yes (Other)
  Sender: FDA-Public Use
  Company Number: 351353

PATIENT

DRUGS (2)
  1. ACCUTANE [Suspect]
     Indication: ACNE
     Dosage: ORAL
     Dates: end: 20031015
  2. NA [Suspect]

REACTIONS (4)
  - ABORTION INDUCED [None]
  - COMPLICATIONS OF MATERNAL EXPOSURE TO THERAPEUTIC DRUGS [None]
  - DRUG EXPOSURE DURING PREGNANCY [None]
  - ECTOPIC PREGNANCY [None]
